FAERS Safety Report 8885229 (Version 5)
Quarter: 2013Q1

REPORT INFORMATION
  Report Type: Spontaneous
  Country: MT (occurrence: MT)
  Receive Date: 20121105
  Receipt Date: 20130125
  Transmission Date: 20140127
  Serious: Yes (Congenital Anomaly)
  Sender: FDA-Public Use
  Company Number: MT-AMGEN-MLTSP2012069682

PATIENT
  Sex: Male

DRUGS (5)
  1. ENBREL [Suspect]
     Dosage: 50 MG, WEEKLY
     Route: 064
     Dates: start: 20090123, end: 201203
  2. METHOTREXATE [Concomitant]
     Dosage: 10 MG, UNK
     Route: 064
     Dates: start: 1996
  3. CYCLOSPORINE [Concomitant]
     Dosage: 200 MG, DAILY
     Route: 064
  4. OMEPRAZOLE [Concomitant]
     Dosage: UNK
     Route: 064
  5. SANATOGEN MULTIVITAMINS [Concomitant]
     Indication: MEDICAL DIET
     Dosage: UNK
     Route: 064
     Dates: start: 2012

REACTIONS (3)
  - Maternal exposure timing unspecified [Unknown]
  - Trisomy 21 [Unknown]
  - Anal atresia [Unknown]
